FAERS Safety Report 7396129-9 (Version None)
Quarter: 2011Q2

REPORT INFORMATION
  Report Type: 
  Country: None (occurrence: None)
  Receive Date: 20110406
  Receipt Date: 20110330
  Transmission Date: 20111010
  Serious: Yes (Hospitalization)
  Sender: FDA-Public Use
  Company Number: CO-GENZYME-CERZ-1001871

PATIENT
  Sex: Male
  Weight: 10 kg

DRUGS (1)
  1. CEREZYME [Suspect]
     Indication: GAUCHER'S DISEASE
     Dosage: 160 U/KG, Q15D
     Route: 042
     Dates: start: 20101027

REACTIONS (1)
  - BACTERIAL INFECTION [None]
